FAERS Safety Report 4701224-6 (Version None)
Quarter: 2005Q2

REPORT INFORMATION
  Report Type: 
  Country: None (occurrence: None)
  Receive Date: 20050624
  Receipt Date: 20050615
  Transmission Date: 20051028
  Serious: Yes (Disabling, Other)
  Sender: FDA-Public Use
  Company Number: 2005080951

PATIENT
  Age: 63 Year
  Sex: Male
  Weight: 92.0802 kg

DRUGS (10)
  1. CELEBREX [Suspect]
     Indication: PAIN
     Dosage: 400 MG (200 MG, 2 IN 1 D), ORAL
     Route: 048
     Dates: start: 20011001
  2. METOPROLOL TARTRATE [Concomitant]
  3. GLIPIZIDE [Concomitant]
  4. ISOSORBIDE (ISOSORBIDE) [Concomitant]
  5. ALTACE [Concomitant]
  6. LIPITOR [Concomitant]
  7. AVANDIA [Concomitant]
  8. DARVOCET [Suspect]
  9. ZOCOR [Concomitant]
  10. PREVACID [Concomitant]

REACTIONS (5)
  - CARPAL TUNNEL SYNDROME [None]
  - FRACTURE [None]
  - INJURY [None]
  - KYPHOSIS [None]
  - SPINAL FRACTURE [None]
